FAERS Safety Report 7117594-8 (Version None)
Quarter: 2010Q4

REPORT INFORMATION
  Report Type: 
  Country: None (occurrence: None)
  Receive Date: 20101122
  Receipt Date: 20101112
  Transmission Date: 20110411
  Serious: Yes (Other)
  Sender: FDA-Public Use
  Company Number: GB-MERCK-1011GBR00052

PATIENT
  Age: 69 Year
  Sex: Male

DRUGS (12)
  1. ZOCOR [Suspect]
     Route: 048
  2. ATENOLOL [Suspect]
     Route: 065
  3. CANDESARTAN [Suspect]
     Route: 065
  4. FLURBIPROFEN [Suspect]
     Route: 065
  5. FOLIC ACID [Suspect]
     Route: 065
  6. ISOSORBIDE MONONITRATE [Suspect]
     Route: 065
  7. LANSOPRAZOLE [Suspect]
     Route: 065
  8. METHOTREXATE [Suspect]
     Route: 065
  9. NICORANDIL [Suspect]
     Route: 065
  10. ASPIRIN [Concomitant]
     Route: 065
  11. CALCIPOTRIENE [Concomitant]
     Route: 065
  12. GUAR [Concomitant]
     Route: 065

REACTIONS (1)
  - ABNORMAL DREAMS [None]
